FAERS Safety Report 5943874-5 (Version None)
Quarter: 2008Q4

REPORT INFORMATION
  Report Type: 
  Country: None (occurrence: None)
  Receive Date: 20081106
  Receipt Date: 20081028
  Transmission Date: 20090506
  Serious: No
  Sender: FDA-Public Use
  Company Number: JP-SANOFI-SYNTHELABO-A01200813302

PATIENT
  Sex: Female

DRUGS (7)
  1. CRESTOR [Concomitant]
     Indication: HYPERLIPIDAEMIA
     Route: 048
     Dates: start: 20070116
  2. EPL [Concomitant]
     Indication: HEPATIC STEATOSIS
     Route: 048
     Dates: start: 20080809
  3. UBIRON [Concomitant]
     Indication: HEPATIC STEATOSIS
     Route: 048
     Dates: start: 20070928
  4. LANSOPRAZOLE [Concomitant]
     Indication: GASTROOESOPHAGEAL REFLUX DISEASE
     Route: 048
     Dates: start: 20060415
  5. ALONG [Concomitant]
     Indication: HYPERTENSION
     Route: 048
     Dates: start: 20061108
  6. AMARYL [Concomitant]
     Indication: DIABETES MELLITUS
     Route: 048
     Dates: start: 20071222
  7. MYSLEE [Suspect]
     Indication: INSOMNIA
     Route: 048
     Dates: start: 20081007, end: 20081001

REACTIONS (1)
  - MUSCLE SPASMS [None]
